FAERS Safety Report 8053322-X (Version None)
Quarter: 2012Q1

REPORT INFORMATION
  Report Type: 
  Country: None (occurrence: None)
  Receive Date: 20120118
  Receipt Date: 20120104
  Transmission Date: 20120608
  Serious: Yes (Other)
  Sender: FDA-Public Use
  Company Number: GB-WATSON-2012-00154

PATIENT
  Age: 47 Year
  Sex: Male

DRUGS (5)
  1. METFORMIN HCL [Concomitant]
     Indication: PRODUCT USED FOR UNKNOWN INDICATION
     Route: 065
  2. SIMVASTATIN [Concomitant]
     Indication: PRODUCT USED FOR UNKNOWN INDICATION
     Route: 065
  3. NOVORAPID [Concomitant]
     Indication: PRODUCT USED FOR UNKNOWN INDICATION
     Route: 065
  4. INSULIN DETEMIR [Concomitant]
     Indication: PRODUCT USED FOR UNKNOWN INDICATION
     Route: 065
  5. LOSARTAN POTASSIUM [Suspect]
     Indication: HYPERTENSION
     Dosage: 300 MG, UNKNOWN
     Route: 065

REACTIONS (3)
  - DERMATITIS ALLERGIC [None]
  - PRODUCT SUBSTITUTION ISSUE [None]
  - RASH ERYTHEMATOUS [None]
